FAERS Safety Report 12165040 (Version 1)
Quarter: 2016Q1

REPORT INFORMATION
  Report Type: Report from Study
  Country: US (occurrence: US)
  Receive Date: 20160309
  Receipt Date: 20160309
  Transmission Date: 20160526
  Serious: No
  Sender: FDA-Public Use
  Company Number: US-ABBVIE-15P-163-1503822-00

PATIENT
  Age: 29 Year
  Sex: Female

DRUGS (1)
  1. LUPRON DEPOT [Suspect]
     Active Substance: LEUPROLIDE ACETATE
     Indication: ENDOMETRIOSIS
     Route: 030

REACTIONS (9)
  - Nephrolithiasis [Not Recovered/Not Resolved]
  - Thyroid disorder [Not Recovered/Not Resolved]
  - Sciatica [Unknown]
  - Amnesia [Not Recovered/Not Resolved]
  - Road traffic accident [Unknown]
  - Nerve injury [Not Recovered/Not Resolved]
  - Impaired work ability [Unknown]
  - Menstrual disorder [Unknown]
  - Depression [Not Recovered/Not Resolved]

NARRATIVE: CASE EVENT DATE: 20140812
